FAERS Safety Report 14768120 (Version 3)
Quarter: 2022Q1

REPORT INFORMATION
  Report Type: Spontaneous
  Country: US (occurrence: US)
  Receive Date: 20180417
  Receipt Date: 20220211
  Transmission Date: 20220423
  Serious: No
  Sender: FDA-Public Use
  Company Number: US-PFIZER INC-2018151726

PATIENT
  Age: 48 Year
  Sex: Male

DRUGS (1)
  1. XELJANZ XR [Suspect]
     Active Substance: TOFACITINIB CITRATE
     Dosage: 11 MG, DAILY
     Dates: start: 20170928

REACTIONS (4)
  - Condition aggravated [Unknown]
  - Stress fracture [Unknown]
  - Arthritis [Unknown]
  - Arthralgia [Unknown]
